FAERS Safety Report 6387071-0 (Version None)
Quarter: 2009Q4

REPORT INFORMATION
  Report Type: 
  Country: None (occurrence: None)
  Receive Date: 20091002
  Receipt Date: 20090925
  Transmission Date: 20100525
  Serious: Yes (Hospitalization)
  Sender: FDA-Public Use
  Company Number: US-AVENTIS-200917895US

PATIENT
  Sex: Male
  Weight: 101.61 kg

DRUGS (5)
  1. LANTUS [Suspect]
     Route: 058
  2. LANTUS [Suspect]
     Route: 058
  3. LANTUS [Suspect]
     Route: 058
  4. OPTICLIK (INSULIN INJECTION PEN) [Suspect]
  5. HUMULIN R [Suspect]
     Dosage: DOSE: UNK

REACTIONS (2)
  - CORONARY ARTERY BYPASS [None]
  - HEART VALVE REPLACEMENT [None]
